FAERS Safety Report 4973862-7 (Version None)
Quarter: 2006Q2

REPORT INFORMATION
  Report Type: 
  Country: None (occurrence: None)
  Receive Date: 20060415
  Receipt Date: 20060406
  Transmission Date: 20061013
  Serious: Yes (Life-Threatening)
  Sender: FDA-Public Use
  Company Number: JP-ABBOTT-06P-087-0330192-00

PATIENT
  Age: 69 Year
  Sex: Male

DRUGS (4)
  1. ODRIC [Suspect]
     Indication: HYPERTENSION
     Route: 048
     Dates: end: 20011115
  2. ESTRAMUSTINE PHOSPHATE SODIUM [Suspect]
     Indication: PROSTATE CANCER
     Route: 048
     Dates: start: 19890101, end: 20011115
  3. PLAUNOTOL [Concomitant]
     Indication: GASTRITIS
     Route: 048
     Dates: start: 19890101, end: 20011115
  4. IMIPRAMINE HCL [Concomitant]
     Indication: DEPRESSION
     Route: 048
     Dates: end: 20011115

REACTIONS (3)
  - BILIARY CIRRHOSIS PRIMARY [None]
  - HEPATIC NEOPLASM MALIGNANT [None]
  - LIVER DISORDER [None]
